FAERS Safety Report 5329899-1 (Version None)
Quarter: 2007Q2

REPORT INFORMATION
  Report Type: 
  Country: None (occurrence: None)
  Receive Date: 20070517
  Receipt Date: 20070517
  Transmission Date: 20071010
  Serious: Yes (Life-Threatening, Hospitalization, Other)
  Sender: FDA-Public Use
  Company Number: None

PATIENT
  Age: 51 Year
  Sex: Male
  Weight: 74.8435 kg

DRUGS (2)
  1. BISOPROLOL FUMARATE AND HYDROCHLOROTHIAZIDE [Suspect]
     Indication: HYPERTENSION
     Dosage: 1 DAILY PO
     Route: 048
     Dates: start: 20060301, end: 20060502
  2. AVAPRO [Suspect]
     Indication: HYPERTENSION
     Dosage: 1 DAILY PO
     Route: 048
     Dates: start: 20060503, end: 20070504

REACTIONS (18)
  - ADVERSE DRUG REACTION [None]
  - ANGINA PECTORIS [None]
  - BRADYCARDIA [None]
  - CHILLS [None]
  - DIZZINESS [None]
  - ELECTROCARDIOGRAM ST SEGMENT ABNORMAL [None]
  - ELECTROCARDIOGRAM T WAVE INVERSION [None]
  - ELECTROENCEPHALOGRAM ABNORMAL [None]
  - FACIAL PAIN [None]
  - GASTROINTESTINAL DISORDER [None]
  - HEART RATE INCREASED [None]
  - HYPERTENSION [None]
  - NECK PAIN [None]
  - PAIN IN EXTREMITY [None]
  - PALPITATIONS [None]
  - PRESYNCOPE [None]
  - SENSORY DISTURBANCE [None]
  - TROPONIN I INCREASED [None]
